FAERS Safety Report 8418061-1 (Version None)
Quarter: 2012Q2

REPORT INFORMATION
  Report Type: 
  Country: None (occurrence: None)
  Receive Date: 20120604
  Receipt Date: 20120604
  Transmission Date: 20120825
  Serious: Yes (Life-Threatening, Other)
  Sender: FDA-Public Use
  Company Number: None

PATIENT
  Sex: Male
  Weight: 75 kg

DRUGS (3)
  1. CASODEX [Concomitant]
  2. BEVACIZUMAB [Suspect]
     Indication: PROSTATE CANCER
     Dosage: 10 OR 15 MG/KG Q 3 WKS IV
     Route: 042
     Dates: start: 20070509, end: 20071026
  3. GOSERELIN 10.8 MG [Suspect]
     Indication: PROSTATE CANCER
     Dosage: 10.8 MG Q 12 WKS SUBCUTANEOUS
     Route: 058
     Dates: start: 20070509, end: 20081226

REACTIONS (6)
  - FATIGUE [None]
  - DYSPNOEA [None]
  - RECTAL HAEMORRHAGE [None]
  - GASTROENTERITIS RADIATION [None]
  - PANCYTOPENIA [None]
  - APLASTIC ANAEMIA [None]
